FAERS Safety Report 25391781 (Version 1)
Quarter: 2025Q2

REPORT INFORMATION
  Report Type: Report from Study
  Country: US (occurrence: US)
  Receive Date: 20250603
  Receipt Date: 20250603
  Transmission Date: 20250717
  Serious: Yes (Other)
  Sender: MYLAN
  Company Number: US-MYLANLABS-2025M1045397

PATIENT
  Sex: Female

DRUGS (11)
  1. WIXELA INHUB [Suspect]
     Active Substance: FLUTICASONE PROPIONATE\SALMETEROL XINAFOATE
     Indication: Product used for unknown indication
  2. TYVASO [Suspect]
     Active Substance: TREPROSTINIL
     Indication: Pulmonary arterial hypertension
     Dosage: 54 MICROGRAM, QID (FOUR TIMES A DAY)
     Dates: start: 2024, end: 2024
  3. TYVASO [Suspect]
     Active Substance: TREPROSTINIL
     Dosage: 66 MICROGRAM, QID (FOUR TIMES A DAY)
     Dates: start: 2024
  4. TYVASO [Suspect]
     Active Substance: TREPROSTINIL
  5. TYVASO [Suspect]
     Active Substance: TREPROSTINIL
     Dosage: 60 MICROGRAM, QID (FOUR TIMES A DAY)
     Dates: start: 202408, end: 2024
  6. TYVASO [Suspect]
     Active Substance: TREPROSTINIL
     Dosage: 48 MICROGRAM, QID (FOUR TIMES A DAY)
  7. TYVASO [Suspect]
     Active Substance: TREPROSTINIL
     Dosage: 72 MICROGRAM, QID (FOUR TIMES A DAY)
  8. TYVASO [Suspect]
     Active Substance: TREPROSTINIL
  9. TYVASO [Suspect]
     Active Substance: TREPROSTINIL
     Dosage: 60 MICROGRAM, QID (FOUR TIMES A DAY)
  10. TYVASO [Suspect]
     Active Substance: TREPROSTINIL
  11. TYVASO [Suspect]
     Active Substance: TREPROSTINIL
     Dosage: 72 MICROGRAM, QID (FOUR TIMES A DAY)
     Dates: start: 202504

REACTIONS (19)
  - Bendopnoea [Unknown]
  - Productive cough [Unknown]
  - Chest discomfort [Unknown]
  - Fatigue [Unknown]
  - Pain in extremity [Unknown]
  - Urinary tract infection [Unknown]
  - Back pain [Unknown]
  - Oropharyngeal pain [Unknown]
  - Anxiety [Unknown]
  - Peripheral swelling [Unknown]
  - Dyspnoea exertional [Unknown]
  - Dyspepsia [Unknown]
  - Drug tolerance decreased [Unknown]
  - Blood pressure decreased [Unknown]
  - Cough [Recovered/Resolved]
  - Oral candidiasis [Unknown]
  - Headache [Unknown]
  - Throat irritation [Unknown]
  - Intentional dose omission [Unknown]

NARRATIVE: CASE EVENT DATE: 20250101
